FAERS Safety Report 24314629 (Version 1)
Quarter: 2024Q3

REPORT INFORMATION
  Report Type: Spontaneous
  Country: JP (occurrence: JP)
  Receive Date: 20240913
  Receipt Date: 20240913
  Transmission Date: 20241017
  Serious: Yes (Other)
  Sender: JOHNSON AND JOHNSON
  Company Number: JP-JNJFOC-20240930522

PATIENT
  Sex: Female

DRUGS (3)
  1. STELARA [Suspect]
     Active Substance: USTEKINUMAB
     Indication: Colitis ulcerative
     Dosage: DOSE UNKNOWN
     Route: 041
     Dates: start: 20240510, end: 20240510
  2. FILGOTINIB [Concomitant]
     Active Substance: FILGOTINIB
     Indication: Colitis ulcerative
     Dosage: DOSE UNKNOWN
     Route: 048
  3. FILGOTINIB [Concomitant]
     Active Substance: FILGOTINIB
     Dosage: DOSE UNKNOWN
     Route: 048
     Dates: start: 2024

REACTIONS (2)
  - Erythema multiforme [Unknown]
  - Oropharyngeal pain [Unknown]

NARRATIVE: CASE EVENT DATE: 20240101
